FAERS Safety Report 9803788 (Version 1)
Quarter: 2014Q1

REPORT INFORMATION
  Report Type: Spontaneous
  Country: US (occurrence: US)
  Receive Date: 20140108
  Receipt Date: 20140108
  Transmission Date: 20141002
  Serious: No
  Sender: FDA-Public Use
  Company Number: US-GLAXOSMITHKLINE-A1038202A

PATIENT
  Age: 63 Year
  Sex: Male
  Weight: 109.1 kg

DRUGS (10)
  1. LOVAZA [Suspect]
     Indication: BLOOD TRIGLYCERIDES INCREASED
     Dosage: 2G TWICE PER DAY
     Route: 048
     Dates: start: 2009
  2. MICARDIS [Concomitant]
  3. NORVASC [Concomitant]
  4. METFORMIN [Concomitant]
  5. ALLOPURINOL [Concomitant]
  6. VICTOZA [Concomitant]
  7. INVOKANA [Concomitant]
  8. MAGNESIUM [Concomitant]
  9. CINNAMON [Concomitant]
  10. UNKNOWN DRUG [Concomitant]

REACTIONS (3)
  - Medication residue present [Unknown]
  - Blood triglycerides increased [Not Recovered/Not Resolved]
  - Drug administration error [Unknown]
